FAERS Safety Report 26037365 (Version 1)
Quarter: 2025Q4

REPORT INFORMATION
  Report Type: Spontaneous
  Country: GB (occurrence: GB)
  Receive Date: 20251112
  Receipt Date: 20251112
  Transmission Date: 20260118
  Serious: Yes (Other)
  Sender: MYLAN
  Company Number: GB-MHRA-EMIS-10198-4debd14b-b574-4e52-81e8-cb30f274e637

PATIENT
  Age: 66 Year
  Sex: Female
  Weight: 86 kg

DRUGS (7)
  1. GABAPENTIN [Suspect]
     Active Substance: GABAPENTIN
     Indication: Back pain
     Dosage: 1 DOSAGE FORM, QD (TAKE ONE CAPSULE ONCE DAILY ON DAY 1)
     Dates: start: 20250623
  2. GABAPENTIN [Suspect]
     Active Substance: GABAPENTIN
     Dosage: 1 DOSAGE FORM, BID (ONE CAPSULE TWICE DAILY ON DAY 2)
     Dates: start: 20250624
  3. GABAPENTIN [Suspect]
     Active Substance: GABAPENTIN
     Dosage: 1 DOSAGE FORM, TID (THEN ONE CAPSULE THREE TIMES A DAY FROM DAY 3 ONWARDS FOR 2 WEEKS AND REVIEW.)
     Dates: start: 20250625
  4. BECLOMETHASONE DIPROPIONATE\FORMOTEROL FUMARATE [Concomitant]
     Active Substance: BECLOMETHASONE DIPROPIONATE\FORMOTEROL FUMARATE
     Dosage: UNK, PRN (1-2 PUFFS TWICE DAILY, UP TO 8 PUFFS DAILY WHEN NEEDED)
     Dates: start: 20250410, end: 20250523
  5. TRAMADOL [Concomitant]
     Active Substance: TRAMADOL
     Dosage: UNK (TWO TO BE TAKEN INITIALLY THEN ONE OR TWO TO BE TAKEN EVERY FOUR TO SIX HOURS)
     Dates: start: 20250506, end: 20250604
  6. POLYETHYLENE GLYCOL\POTASSIUM CHLORIDE\SODIUM BICARBONATE\SODIUM CHLOR [Concomitant]
     Active Substance: POLYETHYLENE GLYCOL\POTASSIUM CHLORIDE\SODIUM BICARBONATE\SODIUM CHLORIDE
     Dosage: UNK, QD (ONE SACHET TO BE TAKEN EACH DAY FOR CONSTIPATIONN CAUSED BY TRAMADOL)
     Dates: start: 20250506, end: 20250618
  7. MORPHINE [Concomitant]
     Active Substance: MORPHINE
     Dosage: UNK (2.5ML TO 5ML TO BE TAKEN EVERY 4-6 HOURS WHEN NEEDED ONLY300 ML)

REACTIONS (3)
  - Joint swelling [Recovered/Resolved]
  - Feeling abnormal [Recovered/Resolved]
  - Rash [Recovered/Resolved]

NARRATIVE: CASE EVENT DATE: 20250703
